FAERS Safety Report 19354055 (Version 2)
Quarter: 2021Q2

REPORT INFORMATION
  Report Type: Report from Study
  Country: AU (occurrence: AU)
  Receive Date: 20210531
  Receipt Date: 20210602
  Transmission Date: 20210717
  Serious: Yes (Death)
  Sender: FDA-Public Use
  Company Number: NVSC2021AU121159

PATIENT
  Sex: Male

DRUGS (2)
  1. DABRAFENIB [Suspect]
     Active Substance: DABRAFENIB
     Indication: GLIOMA
     Dosage: UNK
     Route: 048
     Dates: end: 20201123
  2. TRAMETINIB [Suspect]
     Active Substance: TRAMETINIB
     Indication: GLIOMA
     Dosage: UNK, STRENGTH 2 MG
     Route: 048
     Dates: start: 20201105, end: 20201123

REACTIONS (2)
  - Glioma [Fatal]
  - Malignant neoplasm progression [Fatal]
